FAERS Safety Report 9485862 (Version 1)
Quarter: 2013Q3

REPORT INFORMATION
  Report Type: Spontaneous
  Country: FR (occurrence: FR)
  Receive Date: 20130829
  Receipt Date: 20130829
  Transmission Date: 20140515
  Serious: Yes (Hospitalization)
  Sender: FDA-Public Use
  Company Number: PHHY2013FR093340

PATIENT
  Age: 85 Year
  Sex: Female

DRUGS (8)
  1. VOLTARENE [Suspect]
     Dosage: UNK UKN, UNK
     Route: 048
  2. ZYLORIC [Suspect]
     Indication: HYPERURICAEMIA
     Dosage: 200 MG, QD
     Route: 048
     Dates: start: 20130531, end: 20130623
  3. LEXOMIL [Suspect]
     Dosage: 0.25 DF, PRN
     Route: 048
     Dates: start: 20130531
  4. LODOZ [Concomitant]
     Dosage: 1 DF, QD (LONG TERM)
     Route: 048
  5. LEVOTHYROX [Concomitant]
     Dosage: 1 DF, QD (LONG TERM)
     Route: 048
  6. DAFALGAN [Concomitant]
     Dosage: 1 DF, TID (LONG TERM)
     Route: 048
  7. DUSPATALIN ^DUPHAR^ [Concomitant]
     Dosage: 1 DF, QD (LONG TERM)
     Route: 048
  8. ZOPICLONE [Concomitant]
     Dosage: 0.25 DF, QD (LONG TERM)
     Route: 048

REACTIONS (8)
  - Drug reaction with eosinophilia and systemic symptoms [Recovered/Resolved]
  - Eosinophilia [Unknown]
  - Toxic skin eruption [Unknown]
  - Renal impairment [Unknown]
  - Skin lesion [Unknown]
  - Rash maculo-papular [Unknown]
  - Rash [Unknown]
  - Inflammation [Unknown]
